FAERS Safety Report 8788116 (Version 1)
Quarter: 2012Q4

REPORT INFORMATION
  Report Type: 
  Country: US (occurrence: US)
  Receive Date: 20120914
  Receipt Date: 20120914
  Transmission Date: 20130627
  Serious: Yes (Hospitalization, Other)
  Sender: FDA-Public Use
  Company Number: PHEH2012US017540

PATIENT
  Sex: Male

DRUGS (2)
  1. DIOVAN HCT [Suspect]
     Dosage: 1 DF (160/12.5 mg), UNK
  2. LIPITOR                                 /NET/ [Concomitant]

REACTIONS (4)
  - Retroperitoneal haematoma [Unknown]
  - Coronary artery disease [Unknown]
  - Intervertebral disc protrusion [Unknown]
  - Condition aggravated [Unknown]
